FAERS Safety Report 24783809 (Version 2)
Quarter: 2025Q3

REPORT INFORMATION
  Report Type: Spontaneous
  Country: EU (occurrence: EU)
  Receive Date: 20241227
  Receipt Date: 20250810
  Transmission Date: 20251021
  Serious: Yes (Hospitalization, Other)
  Sender: ALEXION PHARMACEUTICALS
  Company Number: None

PATIENT
  Age: 87 Year
  Sex: Female

DRUGS (11)
  1. DAPAGLIFLOZIN [Suspect]
     Active Substance: DAPAGLIFLOZIN
     Indication: Type 2 diabetes mellitus
     Dates: start: 20240917, end: 20241210
  2. XIGDUO XR [Suspect]
     Active Substance: DAPAGLIFLOZIN PROPANEDIOL\METFORMIN HYDROCHLORIDE
     Indication: Type 2 diabetes mellitus
     Dosage: 1 DOSAGE FORM, Q12H
     Dates: start: 20240830, end: 20240917
  3. TRAMADOL [Concomitant]
     Active Substance: TRAMADOL
     Dates: start: 20241204
  4. PREDNISONE [Concomitant]
     Active Substance: PREDNISONE
     Dates: start: 20241128
  5. Nolotil [Concomitant]
     Dosage: 575 MILLIGRAM, Q8H
     Dates: start: 20241128
  6. CETIRIZINE HYDROCHLORIDE [Concomitant]
     Active Substance: CETIRIZINE HYDROCHLORIDE
     Dosage: 10 MILLIGRAM, Q8H
     Dates: start: 20241128
  7. LORMETAZEPAM [Concomitant]
     Active Substance: LORMETAZEPAM
  8. RAMIPRIL [Concomitant]
     Active Substance: RAMIPRIL
  9. MIRABEGRON [Concomitant]
     Active Substance: MIRABEGRON
  10. OMEPRAZOLE [Concomitant]
     Active Substance: OMEPRAZOLE
  11. ACETAMINOPHEN [Concomitant]
     Active Substance: ACETAMINOPHEN
     Dosage: 1 GRAM, Q8H
     Dates: start: 20210913

REACTIONS (1)
  - Toxic skin eruption [Recovered/Resolved]

NARRATIVE: CASE EVENT DATE: 20241210
